FAERS Safety Report 25043188 (Version 1)
Quarter: 2025Q1

REPORT INFORMATION
  Report Type: Spontaneous
  Country: DE (occurrence: DE)
  Receive Date: 20250305
  Receipt Date: 20250305
  Transmission Date: 20250409
  Serious: Yes (Other)
  Sender: BIOGEN
  Company Number: DE-BIOGEN-2025BI01302797

PATIENT
  Sex: Male

DRUGS (3)
  1. VUMERITY [Suspect]
     Active Substance: DIROXIMEL FUMARATE
     Indication: Multiple sclerosis
     Route: 050
     Dates: start: 20250126
  2. DEVICE\INSULIN NOS [Concomitant]
     Active Substance: DEVICE\INSULIN NOS
     Indication: Type 1 diabetes mellitus
     Route: 050
  3. DEVICE\INSULIN NOS [Concomitant]
     Active Substance: DEVICE\INSULIN NOS
     Route: 050

REACTIONS (2)
  - Blood glucose increased [Not Recovered/Not Resolved]
  - Flushing [Not Recovered/Not Resolved]

NARRATIVE: CASE EVENT DATE: 20250101
